FAERS Safety Report 6193231-4 (Version None)
Quarter: 2009Q2

REPORT INFORMATION
  Report Type: 
  Country: None (occurrence: None)
  Receive Date: 20090518
  Receipt Date: 20090508
  Transmission Date: 20091009
  Serious: Yes (Hospitalization)
  Sender: FDA-Public Use
  Company Number: A0784419A

PATIENT
  Age: 65 Year
  Sex: Male
  Weight: 97.7 kg

DRUGS (16)
  1. AVANDIA [Suspect]
     Indication: TYPE 2 DIABETES MELLITUS
     Dosage: 8MG TWICE PER DAY
     Dates: start: 20010301, end: 20070501
  2. GLUCOPHAGE [Concomitant]
     Dates: start: 19920101, end: 20040101
  3. METFORMIN HCL [Concomitant]
     Dosage: 500MG PER DAY
     Dates: start: 20040101
  4. INSULIN [Concomitant]
     Dosage: 40U PER DAY
     Dates: start: 20060101
  5. GLARGINE [Concomitant]
     Dates: start: 20060101
  6. LANTUS [Concomitant]
     Dates: start: 20060101
  7. GLIPIZIDE [Concomitant]
     Dosage: 10MG TWICE PER DAY
     Dates: start: 20040101
  8. BYETTA [Concomitant]
     Dosage: 10MG PER DAY
     Dates: start: 20061001, end: 20071201
  9. FOSINOPRIL SODIUM [Concomitant]
     Indication: HYPERTENSION
  10. ASPIRIN [Concomitant]
  11. ASPIRIN [Concomitant]
  12. METOPROLOL [Concomitant]
     Dates: start: 19950101
  13. PREDNISONE [Concomitant]
     Dates: start: 20060801
  14. FUROSEMIDE [Concomitant]
     Dates: start: 20070301
  15. SIMVASTATIN [Concomitant]
     Dates: start: 20070601
  16. ZETIA [Concomitant]
     Dates: start: 20070501

REACTIONS (8)
  - ARTERIOSCLEROSIS [None]
  - CARDIAC DISORDER [None]
  - CARDIAC FAILURE CONGESTIVE [None]
  - DYSPNOEA [None]
  - HAEMORRHAGE [None]
  - MYOCARDIAL INFARCTION [None]
  - OEDEMA [None]
  - OEDEMA PERIPHERAL [None]
